FAERS Safety Report 10915817 (Version 1)
Quarter: 2015Q1

REPORT INFORMATION
  Report Type: Spontaneous
  Country: US (occurrence: US)
  Receive Date: 20150316
  Receipt Date: 20150316
  Transmission Date: 20150721
  Serious: Yes (Death)
  Sender: FDA-Public Use
  Company Number: US-ASTRAZENECA-2013SE57091

PATIENT
  Age: 966 Month
  Sex: Male
  Weight: 78.5 kg

DRUGS (22)
  1. METOPROLOL TARTRATE. [Concomitant]
     Active Substance: METOPROLOL TARTRATE
  2. OMEPRAZOLE. [Concomitant]
     Active Substance: OMEPRAZOLE
  3. AMARYL [Concomitant]
     Active Substance: GLIMEPIRIDE
  4. COZAAR [Concomitant]
     Active Substance: LOSARTAN POTASSIUM
  5. SYNTHROID [Concomitant]
     Active Substance: LEVOTHYROXINE SODIUM
  6. ALLOPURINOL. [Concomitant]
     Active Substance: ALLOPURINOL
  7. ACTOS [Concomitant]
     Active Substance: PIOGLITAZONE HYDROCHLORIDE
  8. DEMADEX [Concomitant]
     Active Substance: TORSEMIDE
  9. NIASPAN [Concomitant]
     Active Substance: NIACIN
  10. LOPRESSOR [Concomitant]
     Active Substance: METOPROLOL TARTRATE
  11. ASPIRIN. [Concomitant]
     Active Substance: ASPIRIN
     Route: 065
  12. BYETTA [Suspect]
     Active Substance: EXENATIDE
     Indication: TYPE 2 DIABETES MELLITUS
     Route: 065
     Dates: start: 200707, end: 201202
  13. COLCHICINE. [Concomitant]
     Active Substance: COLCHICINE
  14. LISINOPRIL. [Concomitant]
     Active Substance: LISINOPRIL
  15. CRESTOR [Concomitant]
     Active Substance: ROSUVASTATIN CALCIUM
  16. CALCIUM CARBONATE. [Concomitant]
     Active Substance: CALCIUM CARBONATE
  17. BYETTA [Suspect]
     Active Substance: EXENATIDE
     Indication: TYPE 2 DIABETES MELLITUS
     Route: 065
     Dates: start: 200707, end: 201202
  18. NIACIN. [Concomitant]
     Active Substance: NIACIN
  19. LUPRON [Concomitant]
     Active Substance: LEUPROLIDE ACETATE
  20. GLIPIZIDE. [Concomitant]
     Active Substance: GLIPIZIDE
  21. TORSEMIDE. [Concomitant]
     Active Substance: TORSEMIDE
  22. LIPITOR [Concomitant]
     Active Substance: ATORVASTATIN CALCIUM

REACTIONS (1)
  - Pancreatic carcinoma metastatic [Fatal]

NARRATIVE: CASE EVENT DATE: 200707
